FAERS Safety Report 18350083 (Version 1)
Quarter: 2020Q4

REPORT INFORMATION
  Report Type: Report from Study
  Country: US (occurrence: US)
  Receive Date: 20201006
  Receipt Date: 20201006
  Transmission Date: 20210114
  Serious: Yes (Death, Hospitalization, Other)
  Sender: FDA-Public Use
  Company Number: US-GLAXOSMITHKLINE-US2020GSK190805

PATIENT
  Age: 69 Year
  Sex: Female
  Weight: 91.3 kg

DRUGS (1)
  1. BELANTAMAB MAFODOTIN. [Suspect]
     Active Substance: BELANTAMAB MAFODOTIN
     Indication: PLASMA CELL MYELOMA

REACTIONS (4)
  - Hyponatraemia [Not Recovered/Not Resolved]
  - Cardiac tamponade [Recovering/Resolving]
  - Plasma cell myeloma [Fatal]
  - Pericardial effusion [Recovering/Resolving]

NARRATIVE: CASE EVENT DATE: 20200911
